FAERS Safety Report 20748052 (Version 1)
Quarter: 2022Q2

REPORT INFORMATION
  Report Type: Spontaneous
  Country: GB (occurrence: GB)
  Receive Date: 20220426
  Receipt Date: 20220426
  Transmission Date: 20220721
  Serious: Yes (Hospitalization)
  Sender: FDA-Public Use
  Company Number: GB-002147023-NVSC2022GB080130

PATIENT
  Age: 26 Year
  Sex: Female

DRUGS (3)
  1. DAPSONE [Suspect]
     Active Substance: DAPSONE
     Indication: Hidradenitis
     Dosage: UNK
     Route: 065
  2. METFORMIN [Suspect]
     Active Substance: METFORMIN HYDROCHLORIDE
     Indication: Hidradenitis
     Dosage: UNK
     Route: 065
  3. ADALIMUMAB [Suspect]
     Active Substance: ADALIMUMAB
     Indication: Hidradenitis
     Dosage: 300 MILLIGRAM
     Route: 065

REACTIONS (2)
  - Drug intolerance [Unknown]
  - Treatment failure [Unknown]
